FAERS Safety Report 25922925 (Version 1)
Quarter: 2025Q4

REPORT INFORMATION
  Report Type: Spontaneous
  Country: CA (occurrence: CA)
  Receive Date: 20251015
  Receipt Date: 20251015
  Transmission Date: 20260118
  Serious: Yes (Other)
  Sender: ROCHE
  Company Number: CA-ROCHE-10000406600

PATIENT
  Age: 70 Year
  Sex: Female

DRUGS (4)
  1. ACTEMRA [Suspect]
     Active Substance: TOCILIZUMAB
     Indication: Giant cell arteritis
     Route: 065
  2. ACTONEL [Concomitant]
     Active Substance: RISEDRONATE SODIUM
  3. FAMOTIDINE [Concomitant]
     Active Substance: FAMOTIDINE
  4. PREDNISONE [Concomitant]
     Active Substance: PREDNISONE

REACTIONS (6)
  - Chills [Recovering/Resolving]
  - Head discomfort [Recovering/Resolving]
  - Heart rate increased [Recovering/Resolving]
  - Hypersensitivity [Recovering/Resolving]
  - Nasal congestion [Recovering/Resolving]
  - Paraesthesia [Recovering/Resolving]
